FAERS Safety Report 11250107 (Version 2)
Quarter: 2015Q3

REPORT INFORMATION
  Report Type: Spontaneous
  Country: US (occurrence: US)
  Receive Date: 20150708
  Receipt Date: 20150803
  Transmission Date: 20151125
  Serious: No
  Sender: FDA-Public Use
  Company Number: US-ELI_LILLY_AND_COMPANY-US200904002287

PATIENT
  Age: 40 Year
  Sex: Male

DRUGS (5)
  1. SYMBYAX [Suspect]
     Active Substance: FLUOXETINE HYDROCHLORIDE\OLANZAPINE
     Indication: ANXIETY
     Dosage: 1 D/F, EACH EVENING
     Dates: start: 20090409, end: 200904
  2. DIAZEPAM. [Concomitant]
     Active Substance: DIAZEPAM
  3. VITAMIN D [Concomitant]
     Active Substance: CHOLECALCIFEROL
  4. METOCLOPRAMIDE. [Concomitant]
     Active Substance: METOCLOPRAMIDE
  5. STRATTERA [Suspect]
     Active Substance: ATOMOXETINE HYDROCHLORIDE
     Indication: ATTENTION DEFICIT/HYPERACTIVITY DISORDER
     Dosage: 80 MG, EACH MORNING

REACTIONS (3)
  - Feeling cold [Unknown]
  - Dysgeusia [Not Recovered/Not Resolved]
  - Somnolence [Unknown]

NARRATIVE: CASE EVENT DATE: 20090409
